FAERS Safety Report 7213321-4 (Version None)
Quarter: 2010Q4

REPORT INFORMATION
  Report Type: 
  Country: None (occurrence: None)
  Receive Date: 20101126
  Receipt Date: 20091110
  Transmission Date: 20110411
  Serious: Yes (Other)
  Sender: FDA-Public Use
  Company Number: WAES 0705USA00821

PATIENT
  Age: 62 Year
  Sex: Female
  Weight: 68.9467 kg

DRUGS (4)
  1. FOSAMAX [Suspect]
     Indication: OSTEOPOROSIS
     Dosage: 70 MG/WKY/PO
     Route: 048
     Dates: start: 20010402, end: 20050701
  2. ACIPHEX [Concomitant]
  3. ADVAIR [Concomitant]
  4. ZYRTEC [Concomitant]

REACTIONS (13)
  - DEPRESSION [None]
  - DIARRHOEA [None]
  - GASTROOESOPHAGEAL REFLUX DISEASE [None]
  - HAEMATOMA [None]
  - HYPERTENSION [None]
  - LACERATION [None]
  - LARYNGITIS [None]
  - LIPIDS INCREASED [None]
  - OEDEMA MOUTH [None]
  - OSTEOMYELITIS CHRONIC [None]
  - OSTEONECROSIS [None]
  - SINUSITIS [None]
  - TOOTH DISORDER [None]
